FAERS Safety Report 6110990-7 (Version None)
Quarter: 2009Q1

REPORT INFORMATION
  Report Type: 
  Country: None (occurrence: None)
  Receive Date: 20090311
  Receipt Date: 20090227
  Transmission Date: 20090719
  Serious: Yes (Other)
  Sender: FDA-Public Use
  Company Number: US-ROCHE-617807

PATIENT
  Sex: Male

DRUGS (1)
  1. ISOTRETINOIN [Suspect]
     Indication: DRUG USE FOR UNKNOWN INDICATION
     Dosage: DISPENSED ACCUTANE 10MG AND 40MG CAPSULE ON 04DEC08 AND 14JAN09.
     Route: 065

REACTIONS (1)
  - NEUROBLASTOMA RECURRENT [None]
